FAERS Safety Report 13142051 (Version 1)
Quarter: 2017Q1

REPORT INFORMATION
  Report Type: Spontaneous
  Country: US (occurrence: US)
  Receive Date: 20170123
  Receipt Date: 20170123
  Transmission Date: 20170428
  Serious: Yes (Death)
  Sender: FDA-Public Use
  Company Number: None

PATIENT
  Age: 64 Year
  Sex: Male

DRUGS (16)
  1. ATORVASTATIN [Concomitant]
     Active Substance: ATORVASTATIN
  2. FLUTICASONE. [Concomitant]
     Active Substance: FLUTICASONE
  3. ONDANSETRON [Concomitant]
     Active Substance: ONDANSETRON
  4. SOTALOL. [Concomitant]
     Active Substance: SOTALOL
  5. LOPERIMIDE [Concomitant]
  6. POTASSIUM ER [Concomitant]
  7. NITROSTAT [Concomitant]
     Active Substance: NITROGLYCERIN
  8. DUTASTERIDE. [Concomitant]
     Active Substance: DUTASTERIDE
  9. AMLODIPINE [Concomitant]
     Active Substance: AMLODIPINE BESYLATE
  10. CLOPIDOGREL [Concomitant]
     Active Substance: CLOPIDOGREL BISULFATE
  11. CRESTOR [Concomitant]
     Active Substance: ROSUVASTATIN CALCIUM
  12. FENOFIBRATE. [Concomitant]
     Active Substance: FENOFIBRATE
  13. LISINOPRIL. [Concomitant]
     Active Substance: LISINOPRIL
  14. RANEXA [Concomitant]
     Active Substance: RANOLAZINE
  15. PRALUENT [Suspect]
     Active Substance: ALIROCUMAB
     Indication: HYPERCHOLESTEROLAEMIA
     Route: 058
     Dates: start: 20160510, end: 20161201
  16. ISOSORBIDE ER [Concomitant]
     Active Substance: ISOSORBIDE

REACTIONS (3)
  - Toxic shock syndrome [None]
  - Renal failure [None]
  - Hepatic failure [None]

NARRATIVE: CASE EVENT DATE: 20161211
